FAERS Safety Report 23252155 (Version 2)
Quarter: 2024Q3

REPORT INFORMATION
  Report Type: Spontaneous
  Country: US (occurrence: US)
  Receive Date: 20231201
  Receipt Date: 20240911
  Transmission Date: 20241016
  Serious: No
  Sender: SANOFI AVENTIS
  Company Number: US-SA-SAC20231129001440

PATIENT
  Age: 64 Year
  Sex: Female
  Weight: 103.86 kg

DRUGS (2)
  1. DUPIXENT [Suspect]
     Active Substance: DUPILUMAB
     Indication: Asthma
     Dosage: 300 MG, QOW
     Route: 058
  2. DUPIXENT [Suspect]
     Active Substance: DUPILUMAB
     Indication: Chronic sinusitis
     Dosage: 300 MG, QOW, STARTED AGAIN IN JUNE AND STARTRED IN JULY
     Route: 058

REACTIONS (8)
  - Intervertebral disc operation [Unknown]
  - Chronic sinusitis [Unknown]
  - Condition aggravated [Unknown]
  - Illness [Unknown]
  - Asthma [Unknown]
  - Product dose omission issue [Unknown]
  - Product prescribing issue [Unknown]
  - Drug effective for unapproved indication [Unknown]

NARRATIVE: CASE EVENT DATE: 20231120
